FAERS Safety Report 16371544 (Version 2)
Quarter: 2019Q2

REPORT INFORMATION
  Report Type: Spontaneous
  Country: US (occurrence: US)
  Receive Date: 20190530
  Receipt Date: 20190603
  Transmission Date: 20190711
  Serious: Yes (Other)
  Sender: FDA-Public Use
  Company Number: US-PFIZER INC-2019230893

PATIENT
  Age: 59 Year
  Sex: Female
  Weight: 139.68 kg

DRUGS (1)
  1. GABAPENTIN. [Suspect]
     Active Substance: GABAPENTIN
     Indication: FIBROMYALGIA
     Dosage: 600 MG, 4X/DAY (300MG 2 CAPS BY MOUTH FOUR TIMES A DAY)
     Route: 048

REACTIONS (4)
  - Sleep apnoea syndrome [Unknown]
  - Off label use [Unknown]
  - Drug ineffective for unapproved indication [Unknown]
  - Insomnia [Unknown]
